FAERS Safety Report 6023537-0 (Version None)
Quarter: 2008Q4

REPORT INFORMATION
  Report Type: 
  Country: None (occurrence: None)
  Receive Date: 20081230
  Receipt Date: 20081224
  Transmission Date: 20090506
  Serious: Yes (Life-Threatening, Hospitalization, Disabling)
  Sender: FDA-Public Use
  Company Number: PHEH2008US11381

PATIENT
  Sex: Female
  Weight: 112.2 kg

DRUGS (11)
  1. IMATINIB MESYLATE [Suspect]
     Indication: CHRONIC MYELOID LEUKAEMIA
     Dosage: 400 MG, QD
     Route: 048
     Dates: start: 20010810
  2. INSULIN [Concomitant]
  3. LASIX [Concomitant]
  4. LEVOXYL [Concomitant]
  5. AMARYL [Concomitant]
  6. ACTOS [Concomitant]
  7. LISINOPRIL [Concomitant]
  8. IRON [Concomitant]
  9. IBUPROFEN TABLETS [Concomitant]
  10. LUTEIN [Concomitant]
  11. ACETAMINOPHEN [Concomitant]

REACTIONS (7)
  - BIOPSY ENDOMETRIUM ABNORMAL [None]
  - ENDOMETRIAL CANCER [None]
  - ENDOMETRIAL CANCER STAGE III [None]
  - GENITAL HAEMORRHAGE [None]
  - HYSTERECTOMY [None]
  - LYMPHADENECTOMY [None]
  - SALPINGO-OOPHORECTOMY BILATERAL [None]
